FAERS Safety Report 6983270-5 (Version None)
Quarter: 2010Q3

REPORT INFORMATION
  Report Type: 
  Country: None (occurrence: None)
  Receive Date: 20100914
  Receipt Date: 20100706
  Transmission Date: 20110219
  Serious: Yes (Other)
  Sender: FDA-Public Use
  Company Number: US-PFIZER INC-2010084339

PATIENT
  Sex: Female
  Weight: 173.6 kg

DRUGS (3)
  1. LYRICA [Suspect]
     Indication: FIBROMYALGIA
     Dosage: 25 MG, 1X/DAY
     Route: 048
     Dates: start: 20100610, end: 20100701
  2. LYRICA [Suspect]
     Indication: NEUROPATHY PERIPHERAL
  3. BUMEX [Concomitant]
     Indication: FLUID RETENTION
     Dosage: 3 MG, 4X/DAY

REACTIONS (1)
  - WEIGHT INCREASED [None]
